FAERS Safety Report 7582865-8 (Version None)
Quarter: 2011Q2

REPORT INFORMATION
  Report Type: 
  Country: None (occurrence: None)
  Receive Date: 20110627
  Receipt Date: 20110627
  Transmission Date: 20111010
  Serious: Yes (Other)
  Sender: FDA-Public Use
  Company Number: None

PATIENT
  Age: 49 Year
  Sex: Male
  Weight: 81.6475 kg

DRUGS (1)
  1. LEVAQUIN [Suspect]
     Indication: URINARY TRACT INFECTION
     Dosage: ONE 750MG TABLET DAILY
     Route: 048
     Dates: start: 20110615, end: 20110621

REACTIONS (20)
  - CONFUSIONAL STATE [None]
  - DEPRESSION [None]
  - ASTHENIA [None]
  - FATIGUE [None]
  - HEART RATE INCREASED [None]
  - ARTHRITIS [None]
  - MOOD ALTERED [None]
  - JOINT SWELLING [None]
  - GRIP STRENGTH DECREASED [None]
  - JOINT CREPITATION [None]
  - ABNORMAL BEHAVIOUR [None]
  - DECREASED APPETITE [None]
  - ANXIETY [None]
  - CHEST PAIN [None]
  - HEADACHE [None]
  - TENDON PAIN [None]
  - ANGER [None]
  - MUSCULAR WEAKNESS [None]
  - IRRITABILITY [None]
  - DIZZINESS [None]
